FAERS Safety Report 6309173-7 (Version None)
Quarter: 2009Q3

REPORT INFORMATION
  Report Type: 
  Country: None (occurrence: None)
  Receive Date: 20090814
  Receipt Date: 20090604
  Transmission Date: 20100115
  Serious: No
  Sender: FDA-Public Use
  Company Number: A0788818A

PATIENT
  Age: 41 Year
  Sex: Female

DRUGS (3)
  1. COREG CR [Suspect]
     Indication: BLOOD PRESSURE
     Dosage: 1TAB PER DAY
     Route: 048
     Dates: start: 20090601
  2. PAXIL CR [Concomitant]
  3. MICARDIS HCT [Concomitant]

REACTIONS (4)
  - APATHY [None]
  - FATIGUE [None]
  - SLUGGISHNESS [None]
  - SOMNOLENCE [None]
